FAERS Safety Report 8543892-7 (Version None)
Quarter: 2012Q3

REPORT INFORMATION
  Report Type: 
  Country: None (occurrence: None)
  Receive Date: 20120727
  Receipt Date: 20120724
  Transmission Date: 20120928
  Serious: Yes (Other)
  Sender: FDA-Public Use
  Company Number: PHEH2012US014584

PATIENT
  Sex: Male

DRUGS (1)
  1. DIOVAN [Suspect]
     Indication: BLOOD PRESSURE
     Dosage: UNK UKN, QD
     Route: 048

REACTIONS (5)
  - ATRIAL FIBRILLATION [None]
  - DIABETES MELLITUS [None]
  - HYPOTHYROIDISM [None]
  - GOUT [None]
  - OVERWEIGHT [None]
